FAERS Safety Report 4995588-6 (Version None)
Quarter: 2006Q2

REPORT INFORMATION
  Report Type: 
  Country: None (occurrence: None)
  Receive Date: 20060508
  Receipt Date: 20060425
  Transmission Date: 20061013
  Serious: Yes (Other)
  Sender: FDA-Public Use
  Company Number: JP-ROCHE-446227

PATIENT
  Age: 6 Year
  Sex: Female

DRUGS (2)
  1. ROCEPHIN [Suspect]
     Indication: PNEUMONIA
     Route: 065
  2. MINOCYCLINE HCL [Concomitant]

REACTIONS (1)
  - PANCREATITIS ACUTE [None]
